FAERS Safety Report 8429137-7 (Version None)
Quarter: 2012Q2

REPORT INFORMATION
  Report Type: 
  Country: None (occurrence: None)
  Receive Date: 20120612
  Receipt Date: 20120604
  Transmission Date: 20120825
  Serious: Yes (Other)
  Sender: FDA-Public Use
  Company Number: US-BAYER-2012-028487

PATIENT
  Age: 24 Year
  Sex: Female
  Weight: 56.689 kg

DRUGS (1)
  1. YAZ [Suspect]
     Indication: CONTRACEPTION
     Dosage: UNK
     Dates: start: 20061001, end: 20090101

REACTIONS (12)
  - MIGRAINE [None]
  - PSYCHOLOGICAL TRAUMA [None]
  - INFERTILITY [None]
  - FEAR [None]
  - ANXIETY [None]
  - ANHEDONIA [None]
  - THROMBOSIS [None]
  - PAIN [None]
  - FALLOPIAN TUBE OBSTRUCTION [None]
  - MUSCLE SPASMS [None]
  - INJURY [None]
  - EMOTIONAL DISTRESS [None]
